FAERS Safety Report 5522618-5 (Version None)
Quarter: 2007Q4

REPORT INFORMATION
  Report Type: 
  Country: None (occurrence: None)
  Receive Date: 20071120
  Receipt Date: 20071108
  Transmission Date: 20080405
  Serious: Yes (Hospitalization)
  Sender: FDA-Public Use
  Company Number: CA-SHR-CA-2007-035137

PATIENT
  Age: 51 Year
  Sex: Female

DRUGS (2)
  1. BETASERON [Suspect]
     Indication: RELAPSING-REMITTING MULTIPLE SCLEROSIS
     Dosage: 8 MIU, EVERY 2D
     Route: 058
     Dates: start: 20030807, end: 20070530
  2. SATIVEX [Suspect]
     Dates: end: 20070501

REACTIONS (3)
  - DEPRESSION [None]
  - FATIGUE [None]
  - PSYCHOTIC DISORDER [None]
